FAERS Safety Report 9750070 (Version 2)
Quarter: 2015Q3

REPORT INFORMATION
  Report Type: Spontaneous
  Country: US (occurrence: US)
  Receive Date: 20131212
  Receipt Date: 20150730
  Transmission Date: 20151125
  Serious: No
  Sender: FDA-Public Use
  Company Number: US-GILEAD-US-CVT-090819

PATIENT
  Age: 53 Year
  Sex: Male

DRUGS (4)
  1. METOPROLOL                         /00376901/ [Concomitant]
     Indication: HYPERTENSION
  2. PROZAC [Concomitant]
     Active Substance: FLUOXETINE HYDROCHLORIDE
     Indication: DEPRESSION
  3. FUROSEMIDE /00032601/ [Concomitant]
  4. RANEXA [Suspect]
     Active Substance: RANOLAZINE
     Indication: ANGINA PECTORIS
     Route: 048
     Dates: start: 20091207, end: 20091211

REACTIONS (1)
  - No therapeutic response [Unknown]
